FAERS Safety Report 9596707 (Version 3)
Quarter: 2013Q4

REPORT INFORMATION
  Report Type: Spontaneous
  Country: DE (occurrence: DE)
  Receive Date: 20131004
  Receipt Date: 20131202
  Transmission Date: 20140711
  Serious: Yes (Death, Hospitalization, Other)
  Sender: FDA-Public Use
  Company Number: DE-GLAXOSMITHKLINE-B0912742A

PATIENT
  Age: 70 Year
  Sex: Male
  Weight: 75 kg

DRUGS (7)
  1. XGEVA [Suspect]
     Indication: SARCOMA
     Route: 058
     Dates: start: 20120419, end: 20120614
  2. XGEVA [Suspect]
     Indication: METASTASES TO BONE
  3. VOTRIENT [Suspect]
     Indication: PRODUCT USED FOR UNKNOWN INDICATION
     Dosage: 200MG PER DAY
     Route: 048
     Dates: start: 20130102, end: 20130122
  4. ADRIAMYCIN [Concomitant]
     Dosage: 600MGM2 SIX TIMES PER DAY
     Route: 042
     Dates: start: 20120213, end: 20120605
  5. IFOSFAMIDE [Concomitant]
     Dosage: 1200MGM2 SIX TIMES PER DAY
     Route: 042
     Dates: start: 20120213, end: 20120605
  6. TRABECTEDIN [Concomitant]
     Dosage: 1.5MGM2 PER DAY
     Route: 042
     Dates: start: 20121108, end: 20121108
  7. BISOPROLOL [Concomitant]

REACTIONS (16)
  - Sarcoma metastatic [Fatal]
  - Arrhythmia [Fatal]
  - Pulmonary embolism [Fatal]
  - Hepatic failure [Fatal]
  - Cytotoxic cardiomyopathy [Fatal]
  - Vomiting [Unknown]
  - Tachycardia [Unknown]
  - Liver function test abnormal [Unknown]
  - Asthenia [Unknown]
  - Atrial fibrillation [Unknown]
  - Diabetes mellitus [Unknown]
  - Cerebral hygroma [Unknown]
  - Osteonecrosis of jaw [Recovering/Resolving]
  - Aphagia [Unknown]
  - Nausea [Unknown]
  - Fatigue [Unknown]
